FAERS Safety Report 18413493 (Version 3)
Quarter: 2021Q4

REPORT INFORMATION
  Report Type: Spontaneous
  Country: US (occurrence: None)
  Receive Date: 20201021
  Receipt Date: 20211202
  Transmission Date: 20220303
  Serious: Yes (Hospitalization)
  Sender: FDA-Public Use
  Company Number: US-ROCHE-2697874

PATIENT
  Sex: Male

DRUGS (8)
  1. AVASTIN [Suspect]
     Active Substance: BEVACIZUMAB
     Indication: Product used for unknown indication
     Route: 042
  2. LONSURF [Suspect]
     Active Substance: TIPIRACIL HYDROCHLORIDE\TRIFLURIDINE
     Indication: Colon cancer
     Route: 048
     Dates: start: 20200908
  3. ATROPINE SULFATE [Concomitant]
     Active Substance: ATROPINE SULFATE
  4. DIPHENOXYLATE HYDROCHLORIDE [Concomitant]
     Active Substance: DIPHENOXYLATE HYDROCHLORIDE
  5. DOXYCYCLINE HYCLATE [Concomitant]
     Active Substance: DOXYCYCLINE HYCLATE
  6. OMEPRAZOLE [Concomitant]
     Active Substance: OMEPRAZOLE
  7. ONDANSETRON [Concomitant]
     Active Substance: ONDANSETRON
  8. PROGRAF [Concomitant]
     Active Substance: TACROLIMUS

REACTIONS (6)
  - Malnutrition [Unknown]
  - Dehydration [Unknown]
  - Decreased appetite [Unknown]
  - Diarrhoea [Unknown]
  - Rash [Unknown]
  - Weight decreased [Unknown]
